FAERS Safety Report 6722033-2 (Version None)
Quarter: 2010Q2

REPORT INFORMATION
  Report Type: 
  Country: None (occurrence: None)
  Receive Date: 20100512
  Receipt Date: 20100429
  Transmission Date: 20101027
  Serious: Yes (Hospitalization)
  Sender: FDA-Public Use
  Company Number: FR-ELI_LILLY_AND_COMPANY-FR201004008055

PATIENT
  Age: 85 Year
  Sex: Male

DRUGS (7)
  1. UMULINE [Suspect]
     Dosage: 19 IU, DAILY (1/D)
     Route: 058
     Dates: end: 20100101
  2. LASIX [Concomitant]
     Dosage: UNK, UNKNOWN
     Route: 065
  3. CARDENSIEL [Concomitant]
     Dosage: UNK, UNKNOWN
     Route: 065
  4. CASODEX [Concomitant]
     Dosage: UNK, UNKNOWN
     Route: 065
  5. COMBIVENT [Concomitant]
     Dosage: UNK, UNKNOWN
     Route: 065
  6. DIFFU K [Concomitant]
     Dosage: UNK, UNKNOWN
     Route: 065
  7. OXYGEN [Concomitant]
     Dosage: UNK, UNKNOWN
     Route: 065

REACTIONS (6)
  - APHASIA [None]
  - DYSARTHRIA [None]
  - FALL [None]
  - HEMIPARESIS [None]
  - HYPOGLYCAEMIA [None]
  - HYPOPHAGIA [None]
